FAERS Safety Report 6575644-1 (Version None)
Quarter: 2010Q1

REPORT INFORMATION
  Report Type: 
  Country: None (occurrence: None)
  Receive Date: 20100208
  Receipt Date: 20100208
  Transmission Date: 20100710
  Serious: Yes (Other)
  Sender: FDA-Public Use
  Company Number: None

PATIENT
  Age: 45 Year
  Sex: Female
  Weight: 51.7101 kg

DRUGS (2)
  1. CRESTOR [Suspect]
     Indication: HIGH DENSITY LIPOPROTEIN DECREASED
     Dosage: 10 MG 1X DAY PO
     Route: 048
     Dates: start: 20091109, end: 20091223
  2. CRESTOR [Suspect]
     Indication: LOW DENSITY LIPOPROTEIN INCREASED
     Dosage: 10 MG 1X DAY PO
     Route: 048
     Dates: start: 20091109, end: 20091223

REACTIONS (3)
  - AMENORRHOEA [None]
  - HYPERTHYROIDISM [None]
  - OVARIAN CYST [None]
